FAERS Safety Report 9744785 (Version 1)
Quarter: 2013Q4

REPORT INFORMATION
  Report Type: Spontaneous
  Country: US (occurrence: US)
  Receive Date: 20131210
  Receipt Date: 20131210
  Transmission Date: 20140711
  Serious: Yes (Other)
  Sender: FDA-Public Use
  Company Number: US-ROCHE-1315939

PATIENT
  Age: 27 Year
  Sex: Female

DRUGS (3)
  1. SULFAMETHOXAZOLE/TRIMETHOPRIM [Suspect]
     Indication: STATUS EPILEPTICUS
     Dosage: FOR TOTAL 12 DAYS.
     Route: 042
  2. MIDAZOLAM ROCHE UNSPEC. [Suspect]
     Indication: STATUS EPILEPTICUS
     Route: 042
  3. CEFTRIAXONE [Suspect]
     Indication: STATUS EPILEPTICUS
     Route: 065

REACTIONS (1)
  - Rash maculo-papular [Recovered/Resolved]
